FAERS Safety Report 25318670 (Version 1)
Quarter: 2025Q2

REPORT INFORMATION
  Report Type: Spontaneous
  Country: US (occurrence: US)
  Receive Date: 20250515
  Receipt Date: 20250515
  Transmission Date: 20250717
  Serious: No
  Sender: MYLAN
  Company Number: US-MYLANLABS-2025M1038782

PATIENT
  Sex: Female

DRUGS (2)
  1. METHYLPHENIDATE [Suspect]
     Active Substance: METHYLPHENIDATE
     Indication: Cancer fatigue
  2. SYNTHROID [Concomitant]
     Active Substance: LEVOTHYROXINE SODIUM

REACTIONS (2)
  - Feeling jittery [Recovered/Resolved]
  - Off label use [Unknown]
